FAERS Safety Report 10273080 (Version 3)
Quarter: 2014Q3

REPORT INFORMATION
  Report Type: Report from Study
  Country: ZA (occurrence: ZA)
  Receive Date: 20140702
  Receipt Date: 20140711
  Transmission Date: 20150326
  Serious: Yes (Death)
  Sender: FDA-Public Use
  Company Number: PHHY2014ZA081312

PATIENT
  Age: 49 Year
  Sex: Female

DRUGS (1)
  1. GLIVEC [Suspect]
     Active Substance: IMATINIB MESYLATE
     Indication: CHRONIC MYELOID LEUKAEMIA
     Dosage: 600 MG

REACTIONS (3)
  - Procalcitonin increased [Unknown]
  - Death [Fatal]
  - Blood creatinine increased [Unknown]

NARRATIVE: CASE EVENT DATE: 20140304
